FAERS Safety Report 4531306-3 (Version None)
Quarter: 2004Q4

REPORT INFORMATION
  Report Type: 
  Country: None (occurrence: None)
  Receive Date: 20041206
  Receipt Date: 20041006
  Transmission Date: 20050328
  Serious: No
  Sender: FDA-Public Use
  Company Number: USA041080415

PATIENT
  Sex: Female
  Weight: 57 kg

DRUGS (8)
  1. CYMBALTA [Suspect]
     Indication: DEPRESSION
     Dosage: 60 MG DAY
     Dates: start: 20040901
  2. CLONIDINE [Concomitant]
  3. TOPROL-XL [Concomitant]
  4. CATAPRES [Concomitant]
  5. BENICAR [Concomitant]
  6. NORVASC [Concomitant]
  7. CARDIOTEC (TECHNETIUM TC 99M TEBOROXIME) [Concomitant]
  8. FOLIC ACID [Concomitant]

REACTIONS (2)
  - FEELING ABNORMAL [None]
  - PYREXIA [None]
